FAERS Safety Report 26179905 (Version 1)
Quarter: 2025Q4

REPORT INFORMATION
  Report Type: Spontaneous
  Country: US (occurrence: None)
  Receive Date: 20251219
  Receipt Date: 20251219
  Transmission Date: 20260117
  Serious: Yes (Hospitalization)
  Sender: FDA-CTU
  Company Number: None

PATIENT
  Sex: Male

DRUGS (11)
  1. GLASSIA [Suspect]
     Active Substance: .ALPHA.1-PROTEINASE INHIBITOR HUMAN
     Indication: Alpha-1 antitrypsin deficiency
     Dosage: OTHER QUANTITY : 1110 MG/VIAL;??GLASSIA 110 MG/VIAL, 20 VIALS. INFUSE FIVE VIALS OF 1110 MG (5550 MG TOTAL) INTRAVENOUSLY ONCE A WEEK USING A GRAVITY INFUSION SET WITH A 5 MICRON FILTER. WARM GLASSIA TO ROOM TEMPERATURE PRIOR TO INFUSION. TARGET DOSE IS 5838 MG (+/-10%)
     Route: 042
  2. ACETAMINOPHEN [Concomitant]
     Active Substance: ACETAMINOPHEN
  3. BD POSIFLUSH [Concomitant]
  4. DIPHENHYDRAMINE HYDROCHLORIDE [Concomitant]
     Active Substance: DIPHENHYDRAMINE HYDROCHLORIDE
  5. DIPHENHYDRAMINE HYDROCHLO [Concomitant]
  6. LIDOCAINE\PRILOCAINE [Concomitant]
     Active Substance: LIDOCAINE\PRILOCAINE
  7. MONOJECT PHARMA GRADE FLU [Concomitant]
  8. SODIUM CHLORIDE [Concomitant]
     Active Substance: SODIUM CHLORIDE
  9. NORMAL SALINE I.V. FLUSH [Concomitant]
  10. PAIN + FEVER [Concomitant]
  11. SODIUM CHLORIDE [Concomitant]
     Active Substance: SODIUM CHLORIDE

REACTIONS (2)
  - Hospitalisation [None]
  - Intentional dose omission [None]
